FAERS Safety Report 9188354 (Version 1)
Quarter: 2013Q1

REPORT INFORMATION
  Report Type: Report from Study
  Country: DE (occurrence: DE)
  Receive Date: 20130325
  Receipt Date: 20130325
  Transmission Date: 20140127
  Serious: Yes (Other)
  Sender: FDA-Public Use
  Company Number: DE-ACTELION-A-US2013-81155

PATIENT
  Age: 55 Year
  Sex: Female

DRUGS (4)
  1. VENTAVIS [Suspect]
     Indication: PULMONARY ARTERIAL HYPERTENSION
     Dosage: 2.5 UNK, UNK
     Route: 055
     Dates: end: 20130115
  2. VENTAVIS [Suspect]
     Dosage: 2.5 ?G, QID
     Route: 055
     Dates: start: 20120511, end: 20121115
  3. VENTAVIS [Suspect]
     Dosage: 2.5 ?G, QD
     Route: 055
     Dates: start: 201212
  4. VENTAVIS [Suspect]
     Dosage: 2.5 ?G, BID
     Route: 055

REACTIONS (2)
  - Organ transplant [Unknown]
  - Cough [Unknown]
